FAERS Safety Report 10922043 (Version 1)
Quarter: 2015Q1

REPORT INFORMATION
  Report Type: Spontaneous
  Country: US (occurrence: US)
  Receive Date: 20150317
  Receipt Date: 20150317
  Transmission Date: 20150721
  Serious: Yes (Other)
  Sender: FDA-Public Use
  Company Number: US-ASTRAZENECA-2015SE23107

PATIENT
  Age: 58 Year
  Sex: Female
  Weight: 113.4 kg

DRUGS (5)
  1. PRILOSEC [Suspect]
     Active Substance: OMEPRAZOLE MAGNESIUM
     Indication: POLYP
     Dosage: TWO TIMES A DAY
     Route: 048
  2. PRILOSEC [Suspect]
     Active Substance: OMEPRAZOLE MAGNESIUM
     Indication: GASTROOESOPHAGEAL REFLUX DISEASE
     Dosage: TWO TIMES A DAY
     Route: 048
  3. HYZAAR [Concomitant]
     Active Substance: HYDROCHLOROTHIAZIDE\LOSARTAN POTASSIUM
     Indication: BLOOD PRESSURE
  4. NEXIUM [Suspect]
     Active Substance: ESOMEPRAZOLE MAGNESIUM
     Indication: GASTROOESOPHAGEAL REFLUX DISEASE
     Route: 048
  5. NADOL [Concomitant]
     Indication: CHEMOTHERAPY

REACTIONS (8)
  - Off label use [Recovered/Resolved]
  - Overweight [Not Recovered/Not Resolved]
  - Endometrial cancer [Recovered/Resolved with Sequelae]
  - Endometrial cancer recurrent [Recovered/Resolved with Sequelae]
  - Disease progression [Unknown]
  - Cardiac murmur [Not Recovered/Not Resolved]
  - Product use issue [Recovered/Resolved]
  - Ovarian cancer [Recovered/Resolved with Sequelae]

NARRATIVE: CASE EVENT DATE: 2004
